FAERS Safety Report 17997771 (Version 1)
Quarter: 2020Q3

REPORT INFORMATION
  Report Type: Spontaneous
  Country: US (occurrence: US)
  Receive Date: 20200709
  Receipt Date: 20200709
  Transmission Date: 20201103
  Serious: Yes (Other)
  Sender: FDA-Public Use
  Company Number: US-SA-2020SA173349

PATIENT

DRUGS (2)
  1. HUMALOG [Concomitant]
     Active Substance: INSULIN LISPRO
     Route: 065
  2. TOUJEO [Suspect]
     Active Substance: INSULIN GLARGINE
     Indication: DIABETES MELLITUS
     Dosage: 60 IU
     Route: 065

REACTIONS (11)
  - Limb discomfort [Unknown]
  - Product storage error [Unknown]
  - Vein rupture [Unknown]
  - Wrong technique in device usage process [Unknown]
  - Abdominal pain upper [Unknown]
  - Blood glucose increased [Unknown]
  - Product use issue [Unknown]
  - Hypoaesthesia [Unknown]
  - Adverse event [Unknown]
  - Fall [Unknown]
  - Unevaluable event [Unknown]
